FAERS Safety Report 7018602-5 (Version None)
Quarter: 2010Q3

REPORT INFORMATION
  Report Type: 
  Country: None (occurrence: None)
  Receive Date: 20100924
  Receipt Date: 20100917
  Transmission Date: 20110219
  Serious: Yes (Hospitalization)
  Sender: FDA-Public Use
  Company Number: LTI2010A00206

PATIENT
  Age: 56 Year
  Sex: Male

DRUGS (4)
  1. LANSOPRAZOLE [Suspect]
     Dosage: 1 DF (1 DF, 1 IN 1 D), ORAL
     Route: 048
     Dates: start: 20090101, end: 20090801
  2. FLUVASTATIN [Suspect]
     Dosage: ORAL
     Route: 048
     Dates: end: 20090601
  3. ATORVASTATIN CALCIUM [Suspect]
     Dosage: 10 MG (10 MG, 1 IN 1 D), ORAL
     Route: 048
     Dates: start: 20090828, end: 20100401
  4. NEXIUM [Suspect]
     Dosage: 1 DF (1 DF, 1 IN 1 D), ORAL
     Route: 048
     Dates: start: 20090828

REACTIONS (2)
  - EOSINOPHILIC FASCIITIS [None]
  - POLYNEUROPATHY [None]
